FAERS Safety Report 15006413 (Version 1)
Quarter: 2018Q2

REPORT INFORMATION
  Report Type: Report from Study
  Country: US (occurrence: US)
  Receive Date: 20180613
  Receipt Date: 20180613
  Transmission Date: 20180711
  Serious: No
  Sender: FDA-Public Use
  Company Number: US-US WORLDMEDS, LLC-USW201707-000975

PATIENT
  Age: 82 Year
  Sex: Male
  Weight: 64.86 kg

DRUGS (5)
  1. APOKYN [Suspect]
     Active Substance: APOMORPHINE HYDROCHLORIDE
     Indication: PARKINSON^S DISEASE
     Route: 058
     Dates: start: 20170628, end: 20170705
  2. XANAX [Concomitant]
     Active Substance: ALPRAZOLAM
  3. METOPROLOL. [Concomitant]
     Active Substance: METOPROLOL
  4. LISINOPRIL. [Concomitant]
     Active Substance: LISINOPRIL
  5. ASA [Concomitant]
     Active Substance: ASPIRIN

REACTIONS (4)
  - Cold sweat [Recovered/Resolved]
  - Hypotension [Recovered/Resolved]
  - Dizziness [Recovered/Resolved]
  - Malaise [Recovered/Resolved]

NARRATIVE: CASE EVENT DATE: 20170705
